FAERS Safety Report 5060846-6 (Version None)
Quarter: 2006Q3

REPORT INFORMATION
  Report Type: 
  Country: None (occurrence: None)
  Receive Date: 20060725
  Receipt Date: 20060717
  Transmission Date: 20061208
  Serious: Yes (Hospitalization)
  Sender: FDA-Public Use
  Company Number: FR-GLAXOSMITHKLINE-B0431246A

PATIENT
  Age: 12 Year
  Sex: Female

DRUGS (8)
  1. AUGMENTIN '125' [Suspect]
     Route: 048
     Dates: start: 20060311, end: 20060319
  2. OFLOCET [Suspect]
     Route: 048
     Dates: start: 20060308, end: 20060314
  3. COUMADIN [Concomitant]
     Route: 048
     Dates: start: 20060107, end: 20060316
  4. COZAAR [Concomitant]
     Route: 048
     Dates: start: 20051130, end: 20060316
  5. NEORAL [Concomitant]
     Dosage: 200MG PER DAY
     Route: 048
     Dates: start: 20050115
  6. CELLCEPT [Concomitant]
     Dosage: 660MG PER DAY
     Route: 048
     Dates: start: 20021225
  7. THALIDOMIDE [Concomitant]
     Route: 065
     Dates: start: 20041001
  8. CORTANCYL [Concomitant]
     Dosage: 9MG PER DAY
     Route: 065

REACTIONS (5)
  - C-REACTIVE PROTEIN INCREASED [None]
  - EOSINOPHILIA [None]
  - HYPERTENSION [None]
  - LEUKOCYTURIA [None]
  - RENAL FAILURE ACUTE [None]
